APPROVED DRUG PRODUCT: ZOLEDRONIC ACID
Active Ingredient: ZOLEDRONIC ACID
Strength: EQ 5MG BASE/100ML
Dosage Form/Route: INJECTABLE;INTRAVENOUS
Application: A202828 | Product #001 | TE Code: AP
Applicant: INFORLIFE SA
Approved: Sep 23, 2013 | RLD: No | RS: No | Type: RX